FAERS Safety Report 10637529 (Version 1)
Quarter: 2014Q4

REPORT INFORMATION
  Report Type: Report from Study
  Country: US (occurrence: US)
  Receive Date: 20141208
  Receipt Date: 20141208
  Transmission Date: 20150529
  Serious: Yes (Other)
  Sender: FDA-Public Use
  Company Number: US-009507513-1412USA000774

PATIENT
  Age: 71 Year
  Sex: Female

DRUGS (10)
  1. PREVACID [Concomitant]
     Active Substance: LANSOPRAZOLE
  2. AMBIEN [Concomitant]
     Active Substance: ZOLPIDEM TARTRATE
  3. CEFTIN [Concomitant]
     Active Substance: CEFUROXIME AXETIL
  4. AMLODIPINE [Concomitant]
     Active Substance: AMLODIPINE BESYLATE
  5. TEMODAR [Suspect]
     Active Substance: TEMOZOLOMIDE
     Indication: OVARIAN CANCER RECURRENT
     Dosage: 150 MG, 1 IN 28DAYS
     Dates: start: 20121107
  6. VELIPARIB [Suspect]
     Active Substance: VELIPARIB
     Indication: OVARIAN CANCER RECURRENT
     Dosage: 40 MG, 2 IN 1 DAY, FOR 7 DAYS EVERY 28 DAYS
     Route: 048
     Dates: start: 20121107, end: 20131204
  7. ONDANSETRON HYDROCHLORIDE. [Concomitant]
     Active Substance: ONDANSETRON HYDROCHLORIDE
  8. ZOLOFT [Concomitant]
     Active Substance: SERTRALINE HYDROCHLORIDE
  9. ATIVAN [Concomitant]
     Active Substance: LORAZEPAM
  10. ALUDROX (ALUMINUM HYDROXIDE (+) MAGNESIUM HYDROXIDE) [Concomitant]

REACTIONS (2)
  - Myelofibrosis [Unknown]
  - Myelodysplastic syndrome [Unknown]

NARRATIVE: CASE EVENT DATE: 20141007
